FAERS Safety Report 5267468-2 (Version None)
Quarter: 2007Q1

REPORT INFORMATION
  Report Type: 
  Country: None (occurrence: None)
  Receive Date: 20061213
  Receipt Date: 20041102
  Transmission Date: 20070707
  Serious: Yes (Hospitalization)
  Sender: FDA-Public Use
  Company Number: 2004UW19608

PATIENT
  Age: 59 Year
  Sex: Male
  Weight: 102.0593 kg

DRUGS (7)
  1. IRESSA [Suspect]
     Indication: LUNG CANCER METASTATIC
     Dosage: 250 MG DAILY PO
     Route: 048
     Dates: start: 20040907
  2. NO MATCH [Concomitant]
  3. ACTOS [Concomitant]
  4. THEOPHYLLINE [Concomitant]
  5. CLARITIN-D [Concomitant]
  6. PREDNISONE [Concomitant]
  7. IRESSA [Suspect]
     Indication: LUNG CANCER METASTATIC
     Dosage: 250 MG PO
     Route: 048
     Dates: start: 20041011

REACTIONS (2)
  - LOCAL SWELLING [None]
  - METASTATIC NEOPLASM [None]
